FAERS Safety Report 12930195 (Version 3)
Quarter: 2017Q1

REPORT INFORMATION
  Report Type: Spontaneous
  Country: US (occurrence: US)
  Receive Date: 20161110
  Receipt Date: 20170113
  Transmission Date: 20170428
  Serious: No
  Sender: FDA-Public Use
  Company Number: US-BAYER-2016-212398

PATIENT
  Age: 21 Year
  Sex: Female

DRUGS (3)
  1. MIRENA [Suspect]
     Active Substance: LEVONORGESTREL
     Indication: MENORRHAGIA
  2. MIRENA [Suspect]
     Active Substance: LEVONORGESTREL
     Indication: CONTRACEPTION
     Dosage: 20 MCG/24HR, CONT
     Route: 015
     Dates: start: 20160928, end: 20161103
  3. MIRENA [Suspect]
     Active Substance: LEVONORGESTREL
     Indication: BLEEDING ANOVULATORY

REACTIONS (3)
  - Hypertension [None]
  - Vomiting [None]
  - Device expulsion [None]

NARRATIVE: CASE EVENT DATE: 20161103
